APPROVED DRUG PRODUCT: LUBIPROSTONE
Active Ingredient: LUBIPROSTONE
Strength: 8MCG
Dosage Form/Route: CAPSULE;ORAL
Application: A209450 | Product #001 | TE Code: AB
Applicant: AMNEAL PHARMACEUTICALS LLC
Approved: Nov 30, 2021 | RLD: No | RS: No | Type: RX